FAERS Safety Report 6519369-7 (Version None)
Quarter: 2009Q4

REPORT INFORMATION
  Report Type: 
  Country: None (occurrence: None)
  Receive Date: 20091228
  Receipt Date: 20091223
  Transmission Date: 20100525
  Serious: Yes (Hospitalization)
  Sender: FDA-Public Use
  Company Number: GXKR2009DE13756

PATIENT
  Age: 47 Year
  Sex: Female

DRUGS (1)
  1. CEFUHEXAL (NGX) [Suspect]
     Dosage: 500 MG, BID
     Route: 048

REACTIONS (7)
  - ABASIA [None]
  - COORDINATION ABNORMAL [None]
  - MUSCLE SPASTICITY [None]
  - MUSCLE TWITCHING [None]
  - PARKINSONISM [None]
  - SPEECH DISORDER [None]
  - TREMOR [None]
